FAERS Safety Report 13011533 (Version 1)
Quarter: 2016Q4

REPORT INFORMATION
  Report Type: Spontaneous
  Country: DE (occurrence: DE)
  Receive Date: 20161209
  Receipt Date: 20161209
  Transmission Date: 20170207
  Serious: Yes (Death, Other)
  Sender: FDA-Public Use
  Company Number: DE-BRISTOL-MYERS SQUIBB COMPANY-BMS-2016-102458

PATIENT
  Sex: Male

DRUGS (1)
  1. NIVOLUMAB [Suspect]
     Active Substance: NIVOLUMAB
     Indication: LUNG ADENOCARCINOMA
     Dosage: 3 MG/M2, UNK
     Route: 042
     Dates: start: 20161006, end: 20161020

REACTIONS (2)
  - General physical health deterioration [Fatal]
  - Myocarditis [Fatal]

NARRATIVE: CASE EVENT DATE: 201611
